FAERS Safety Report 8310489-3 (Version None)
Quarter: 2012Q2

REPORT INFORMATION
  Report Type: 
  Country: None (occurrence: None)
  Receive Date: 20120425
  Receipt Date: 20120410
  Transmission Date: 20120825
  Serious: Yes (Disabling)
  Sender: FDA-Public Use
  Company Number: VE-ROCHE-1058798

PATIENT
  Sex: Female
  Weight: 48 kg

DRUGS (2)
  1. PEGINTERFERON ALFA-2A [Suspect]
     Indication: HEPATITIS C
     Route: 058
     Dates: start: 20120201
  2. RIBAVIRIN [Suspect]
     Indication: HEPATITIS C
     Route: 048
     Dates: start: 20120201

REACTIONS (8)
  - ANAEMIA [None]
  - EPISTAXIS [None]
  - MOUTH ULCERATION [None]
  - NEUTROPENIA [None]
  - PYREXIA [None]
  - ASTHENIA [None]
  - ARTHRALGIA [None]
  - MYALGIA [None]
